FAERS Safety Report 5857188-5 (Version None)
Quarter: 2008Q3

REPORT INFORMATION
  Report Type: 
  Country: None (occurrence: None)
  Receive Date: 20080825
  Receipt Date: 20080819
  Transmission Date: 20090109
  Serious: Yes (Other)
  Sender: FDA-Public Use
  Company Number: PHEH2008US07304

PATIENT
  Sex: Female

DRUGS (1)
  1. EYESCRUB (NVO) [Suspect]
     Dosage: UNK

REACTIONS (7)
  - DYSPNOEA [None]
  - EYE IRRITATION [None]
  - EYELID OEDEMA [None]
  - HYPERSENSITIVITY [None]
  - LIP SWELLING [None]
  - PRURITUS GENERALISED [None]
  - THROAT TIGHTNESS [None]
